FAERS Safety Report 9861909 (Version 4)
Quarter: 2014Q1

REPORT INFORMATION
  Report Type: Report from Study
  Country: DE (occurrence: DE)
  Receive Date: 20140203
  Receipt Date: 20140331
  Transmission Date: 20141002
  Serious: Yes (Hospitalization)
  Sender: FDA-Public Use
  Company Number: DE-JNJFOC-20131108560

PATIENT
  Age: 46 Year
  Sex: Male
  Weight: 70 kg

DRUGS (9)
  1. XARELTO [Suspect]
     Indication: THROMBOSIS PROPHYLAXIS
     Route: 048
     Dates: start: 20131023, end: 20131107
  2. XARELTO [Suspect]
     Indication: THROMBOSIS PROPHYLAXIS
     Dosage: 760 MG
     Route: 048
     Dates: start: 20131001, end: 20131022
  3. XARELTO [Suspect]
     Indication: DEEP VEIN THROMBOSIS
     Route: 048
     Dates: start: 20131023, end: 20131107
  4. XARELTO [Suspect]
     Indication: DEEP VEIN THROMBOSIS
     Dosage: 760 MG
     Route: 048
     Dates: start: 20131001, end: 20131022
  5. PANCREATIN [Concomitant]
     Dosage: 150000 UNITS UNSPECIFIED
     Route: 065
  6. PANTOZOL [Concomitant]
     Route: 065
  7. UNACID [Concomitant]
     Route: 065
     Dates: start: 20131007
  8. FERRO SANOL [Concomitant]
     Route: 065
  9. AMPICILLIN [Concomitant]
     Route: 065
     Dates: start: 20131007

REACTIONS (6)
  - Pancreatic pseudocyst [Recovering/Resolving]
  - Pancreatogenous diabetes [Not Recovered/Not Resolved]
  - Pancreatic haemorrhage [Recovering/Resolving]
  - Abdominal pain [Recovered/Resolved]
  - Pancreatic haemorrhage [Recovered/Resolved]
  - Procedural pain [Recovered/Resolved]
